FAERS Safety Report 18822459 (Version 1)
Quarter: 2021Q1

REPORT INFORMATION
  Report Type: Spontaneous
  Country: AU (occurrence: AU)
  Receive Date: 20210202
  Receipt Date: 20210202
  Transmission Date: 20210419
  Serious: Yes (Other)
  Sender: FDA-Public Use
  Company Number: AU-SUNOVION-2021DSP001009

PATIENT
  Age: 26 Year
  Sex: Male

DRUGS (4)
  1. LATUDA [Suspect]
     Active Substance: LURASIDONE HYDROCHLORIDE
     Indication: SCHIZOPHRENIA
     Dosage: 80 MG
     Route: 065
  2. ZYPREXA [Suspect]
     Active Substance: OLANZAPINE
     Indication: SCHIZOPHRENIA
     Dosage: 10 MG, QD, AT NIGHT
     Route: 065
  3. CLOPINE [Suspect]
     Active Substance: CLOZAPINE
     Indication: SCHIZOPHRENIA
     Dosage: 25MG IN THE MORNING AND 100MG AT NIGHT SINCE AN UNREPORTED DATE BETWEEN 16?OCT?2020 AND 27?OCT?2020
     Route: 065
  4. LATUDA [Suspect]
     Active Substance: LURASIDONE HYDROCHLORIDE
     Dosage: 40 MG
     Route: 065
     Dates: end: 20201029

REACTIONS (16)
  - Neuroleptic malignant syndrome [Unknown]
  - Neutrophil count increased [Recovered/Resolved]
  - Monocyte count increased [Unknown]
  - Rhinitis [Recovered/Resolved]
  - Tachycardia [Recovered/Resolved]
  - Liver function test abnormal [Unknown]
  - C-reactive protein increased [Not Recovered/Not Resolved]
  - Headache [Unknown]
  - Pyrexia [Recovered/Resolved]
  - Sinus tachycardia [Unknown]
  - Tachypnoea [Unknown]
  - Cough [Recovered/Resolved]
  - Electrocardiogram ST segment elevation [Unknown]
  - Nausea [Unknown]
  - Chills [Recovered/Resolved]
  - White blood cell count increased [Recovered/Resolved]

NARRATIVE: CASE EVENT DATE: 2020
